FAERS Safety Report 14350123 (Version 1)
Quarter: 2018Q1

REPORT INFORMATION
  Report Type: Spontaneous
  Country: US (occurrence: US)
  Receive Date: 20180103
  Receipt Date: 20180103
  Transmission Date: 20180509
  Serious: Yes (Death)
  Sender: FDA-Public Use
  Company Number: None

PATIENT
  Age: 66 Year
  Sex: Male
  Weight: 71 kg

DRUGS (9)
  1. ATOVAQUONE. [Concomitant]
     Active Substance: ATOVAQUONE
  2. SPIRIVA [Concomitant]
     Active Substance: TIOTROPIUM BROMIDE MONOHYDRATE
  3. METOPROLOL. [Concomitant]
     Active Substance: METOPROLOL
  4. RANITIDINE. [Concomitant]
     Active Substance: RANITIDINE
  5. CYCLOPHOSPHAMIDE. [Concomitant]
     Active Substance: CYCLOPHOSPHAMIDE
  6. PREDNISONE. [Concomitant]
     Active Substance: PREDNISONE
  7. SYMBICORT [Concomitant]
     Active Substance: BUDESONIDE\FORMOTEROL FUMARATE DIHYDRATE
  8. ALFUZOSIN [Concomitant]
     Active Substance: ALFUZOSIN
  9. RITUXIMAB. [Suspect]
     Active Substance: RITUXIMAB
     Indication: GRANULOMATOSIS WITH POLYANGIITIS
     Dosage: ?          OTHER FREQUENCY:ONCE;?
     Route: 041
     Dates: start: 20171228, end: 20171228

REACTIONS (5)
  - Respiratory failure [None]
  - Septic shock [None]
  - White blood cell count decreased [None]
  - Pneumonia [None]
  - Hypotension [None]

NARRATIVE: CASE EVENT DATE: 20171229
